FAERS Safety Report 9187133 (Version 2)
Quarter: 2013Q1

REPORT INFORMATION
  Report Type: Spontaneous
  Country: CO (occurrence: CO)
  Receive Date: 20130325
  Receipt Date: 20130325
  Transmission Date: 20140127
  Serious: Yes (Death)
  Sender: FDA-Public Use
  Company Number: CO-GLAXOSMITHKLINE-A1016945A

PATIENT
  Sex: Male

DRUGS (1)
  1. WELLBUTRIN [Suspect]
     Indication: MAJOR DEPRESSION
     Route: 065

REACTIONS (2)
  - Completed suicide [Fatal]
  - Drug ineffective [Unknown]
